FAERS Safety Report 6667556-X (Version None)
Quarter: 2010Q2

REPORT INFORMATION
  Report Type: 
  Country: None (occurrence: None)
  Receive Date: 20100405
  Receipt Date: 20100325
  Transmission Date: 20101027
  Serious: Yes (Hospitalization)
  Sender: FDA-Public Use
  Company Number: SE-JNJFOC-20090102177

PATIENT
  Age: 16 Year
  Sex: Male

DRUGS (4)
  1. REMICADE [Suspect]
     Indication: INFLAMMATORY BOWEL DISEASE
     Route: 042
  2. REMICADE [Suspect]
     Route: 042
  3. IMUREL [Suspect]
     Indication: INFLAMMATORY BOWEL DISEASE
     Route: 048
  4. PREDNISOLONE [Suspect]
     Indication: INFLAMMATORY BOWEL DISEASE
     Route: 048

REACTIONS (4)
  - CYTOMEGALOVIRUS INFECTION [None]
  - LYMPHADENOPATHY [None]
  - PNEUMOCYSTIS JIROVECI PNEUMONIA [None]
  - TUBERCULOSIS [None]
